FAERS Safety Report 15762642 (Version 4)
Quarter: 2021Q1

REPORT INFORMATION
  Report Type: Report from Study
  Country: US (occurrence: US)
  Receive Date: 20181226
  Receipt Date: 20210327
  Transmission Date: 20210419
  Serious: No
  Sender: FDA-Public Use
  Company Number: PHEH2018US054272

PATIENT
  Sex: Male

DRUGS (4)
  1. COSENTYX [Suspect]
     Active Substance: SECUKINUMAB
     Dosage: 300 MG, QMO (Q4W)
     Route: 058
  2. COSENTYX [Suspect]
     Active Substance: SECUKINUMAB
     Indication: PSORIASIS
     Dosage: 300 MG, QW
     Route: 058
     Dates: start: 20181118
  3. METHOTREXATE. [Concomitant]
     Active Substance: METHOTREXATE
     Indication: PRODUCT USED FOR UNKNOWN INDICATION
     Dosage: 10 MG, Q4W
     Route: 065
  4. METHOTREXATE. [Concomitant]
     Active Substance: METHOTREXATE
     Dosage: 10 MG, QW
     Route: 065

REACTIONS (16)
  - Eye irritation [Not Recovered/Not Resolved]
  - Erythema of eyelid [Unknown]
  - Eye pruritus [Unknown]
  - Ocular hyperaemia [Unknown]
  - Flushing [Not Recovered/Not Resolved]
  - Dry eye [Unknown]
  - Eye inflammation [Unknown]
  - Inappropriate schedule of product administration [Not Recovered/Not Resolved]
  - Eye infection viral [Not Recovered/Not Resolved]
  - Intraocular pressure increased [Unknown]
  - Urticaria [Recovered/Resolved]
  - Swelling face [Unknown]
  - Blepharitis [Unknown]
  - Eyelids pruritus [Unknown]
  - Skin disorder [Unknown]
  - Hypersensitivity [Unknown]
